FAERS Safety Report 11717907 (Version 1)
Quarter: 2015Q4

REPORT INFORMATION
  Report Type: Spontaneous
  Country: SG (occurrence: None)
  Receive Date: 20151109
  Receipt Date: 20151109
  Transmission Date: 20160304
  Serious: Yes (Other)
  Sender: FDA-Public Use
  Company Number: None

PATIENT
  Age: 62 Year
  Sex: Male
  Weight: 75 kg

DRUGS (1)
  1. XARELTO [Suspect]
     Active Substance: RIVAROXABAN
     Indication: ATRIAL FIBRILLATION
     Dates: start: 20150101, end: 20151101

REACTIONS (3)
  - Epistaxis [None]
  - Foot fracture [None]
  - Eye haemorrhage [None]

NARRATIVE: CASE EVENT DATE: 20151101
